FAERS Safety Report 14479985 (Version 7)
Quarter: 2018Q2

REPORT INFORMATION
  Report Type: Report from Study
  Country: US (occurrence: US)
  Receive Date: 20180202
  Receipt Date: 20180620
  Transmission Date: 20180711
  Serious: Yes (Hospitalization, Disabling, Other)
  Sender: FDA-Public Use
  Company Number: US-AMGEN-USASL2018011968

PATIENT
  Age: 41 Year
  Sex: Male

DRUGS (3)
  1. ENBREL [Suspect]
     Active Substance: ETANERCEPT
     Indication: SUBCORNEAL PUSTULAR DERMATOSIS
     Dosage: 50 MG, 2 TIMES/WK
     Route: 065
     Dates: start: 2006
  2. ENBREL [Suspect]
     Active Substance: ETANERCEPT
     Dosage: 50 MG, 2 TIMES/WK
     Route: 065
  3. GABAPENTIN. [Concomitant]
     Active Substance: GABAPENTIN
     Dosage: UNK
     Dates: start: 2018

REACTIONS (13)
  - Anxiety [Unknown]
  - Pyrexia [Unknown]
  - Vitamin B12 deficiency [Unknown]
  - Disability [Not Recovered/Not Resolved]
  - Skin ulcer [Unknown]
  - Carpal tunnel syndrome [Unknown]
  - Blood pressure increased [Unknown]
  - Pruritus [Unknown]
  - Off label use [Unknown]
  - Rash [Unknown]
  - Muscle tightness [Unknown]
  - Skin wrinkling [Unknown]
  - Loss of consciousness [Recovered/Resolved]

NARRATIVE: CASE EVENT DATE: 2007
